FAERS Safety Report 9602422 (Version 1)
Quarter: 2013Q4

REPORT INFORMATION
  Report Type: Spontaneous
  Country: US (occurrence: US)
  Receive Date: 20131007
  Receipt Date: 20131007
  Transmission Date: 20140711
  Serious: Yes (Other)
  Sender: FDA-Public Use
  Company Number: US-PFIZER INC-2013284751

PATIENT
  Age: 38 Year
  Sex: Female

DRUGS (1)
  1. XALKORI [Suspect]
     Indication: PLASMA CELL MYELOMA
     Dosage: 250 MG, 2X/DAY
     Dates: start: 201308

REACTIONS (3)
  - Off label use [Unknown]
  - Pulmonary mycosis [Unknown]
  - Visual impairment [Unknown]
